FAERS Safety Report 8395998-3 (Version None)
Quarter: 2012Q2

REPORT INFORMATION
  Report Type: 
  Country: None (occurrence: None)
  Receive Date: 20120530
  Receipt Date: 20120517
  Transmission Date: 20120825
  Serious: Yes (Other)
  Sender: FDA-Public Use
  Company Number: US-BAYER-2012-049699

PATIENT
  Sex: Male

DRUGS (2)
  1. ASPIRIN [Suspect]
     Indication: PAIN
     Route: 048
  2. ANTIBIOTICS [Concomitant]

REACTIONS (2)
  - SPINAL CORD INFECTION [None]
  - PARALYSIS [None]
